FAERS Safety Report 6671872-5 (Version None)
Quarter: 2010Q2

REPORT INFORMATION
  Report Type: 
  Country: None (occurrence: None)
  Receive Date: 20100407
  Receipt Date: 20100329
  Transmission Date: 20101027
  Serious: Yes (Other)
  Sender: FDA-Public Use
  Company Number: AU-PFIZER INC-2010041282

PATIENT
  Sex: Female

DRUGS (1)
  1. LIPITOR [Suspect]
     Indication: LIPIDS DECREASED
     Dosage: UNK
     Dates: end: 20100101

REACTIONS (2)
  - DISORIENTATION [None]
  - HALLUCINATION [None]
